FAERS Safety Report 9295193 (Version 1)
Quarter: 2013Q2

REPORT INFORMATION
  Report Type: Spontaneous
  Country: US (occurrence: US)
  Receive Date: 20130515
  Receipt Date: 20130515
  Transmission Date: 20140414
  Serious: Yes (Other)
  Sender: FDA-Public Use
  Company Number: US-RB-046657-12

PATIENT
  Age: 23 Year
  Sex: Female

DRUGS (12)
  1. SUBUTEX [Suspect]
     Indication: DRUG DEPENDENCE
     Route: 060
     Dates: start: 20121031
  2. BUPRENORPHINE GENERIC [Suspect]
     Indication: DRUG DEPENDENCE
     Route: 065
  3. OXYCODONE [Suspect]
     Indication: PRODUCT USED FOR UNKNOWN INDICATION
     Dosage: UNKNOWN DOSING DETAILS
     Route: 065
  4. HEROIN [Suspect]
     Indication: PRODUCT USED FOR UNKNOWN INDICATION
     Dosage: UNKNOWN DOSING DETAILS
     Route: 065
  5. CODEINE [Suspect]
     Indication: PRODUCT USED FOR UNKNOWN INDICATION
     Dosage: UNKNOWN DOSING DETAILS
     Route: 065
  6. MORPHINE [Suspect]
     Indication: PRODUCT USED FOR UNKNOWN INDICATION
     Dosage: UNKNOWN DOSING DETAILS
     Route: 065
  7. MARIJUANA [Suspect]
     Indication: PRODUCT USED FOR UNKNOWN INDICATION
     Dosage: UNKNOWN DOSING DETAILS
     Route: 065
  8. PROMETHAZINE [Concomitant]
     Indication: NAUSEA
     Dosage: AS NEEDED
     Route: 065
     Dates: start: 20121031
  9. ALBUTEROL [Concomitant]
     Indication: WHEEZING
     Dosage: DOSING DETAILS UNKNOWN
     Route: 055
  10. FLUTICASONE NS [Concomitant]
     Indication: MULTIPLE ALLERGIES
     Dosage: DOSING DETAILS UNKNOWN
     Route: 065
  11. NICOTINE [Concomitant]
     Indication: PRODUCT USED FOR UNKNOWN INDICATION
     Dosage: 20 CIGARETTES DAILY
     Route: 065
  12. PRENATAL VITAMINS [Concomitant]
     Indication: PREGNANCY
     Dosage: UNKNOWN DOSING DETAILS
     Route: 065

REACTIONS (4)
  - Exposure during pregnancy [Recovered/Resolved]
  - Nausea [Unknown]
  - Premature delivery [Recovered/Resolved]
  - Drug abuse [Not Recovered/Not Resolved]
